FAERS Safety Report 13277148 (Version 2)
Quarter: 2017Q1

REPORT INFORMATION
  Report Type: Spontaneous
  Country: BR (occurrence: BR)
  Receive Date: 20170228
  Receipt Date: 20170330
  Transmission Date: 20170428
  Serious: Yes (Hospitalization, Other)
  Sender: FDA-Public Use
  Company Number: BR-ELI_LILLY_AND_COMPANY-BR201702007005

PATIENT
  Sex: Female
  Weight: 33 kg

DRUGS (11)
  1. HUMULIN N [Suspect]
     Active Substance: INSULIN HUMAN
     Dosage: 14 IU, EACH AFTERNOON
     Route: 065
  2. HUMULIN R [Suspect]
     Active Substance: INSULIN HUMAN
     Dosage: 6 IU, EACH MORNING
     Route: 065
  3. HUMULIN N [Suspect]
     Active Substance: INSULIN HUMAN
     Dosage: 20 IU, EACH MORNING
     Route: 065
  4. HUMULIN N [Suspect]
     Active Substance: INSULIN HUMAN
     Dosage: 16 IU, EACH EVENING
     Route: 065
  5. HUMALOG [Suspect]
     Active Substance: INSULIN LISPRO
     Indication: TYPE 1 DIABETES MELLITUS
     Dosage: 3 IU, EACH EVENING
     Route: 065
     Dates: start: 20170126
  6. HUMULIN N [Suspect]
     Active Substance: INSULIN HUMAN
     Indication: TYPE 1 DIABETES MELLITUS
     Dosage: 12 IU, EACH MORNING
     Route: 065
     Dates: start: 20160203
  7. HUMULIN R [Suspect]
     Active Substance: INSULIN HUMAN
     Dosage: 6 IU, EACH EVENING
     Route: 065
  8. HUMULIN N [Suspect]
     Active Substance: INSULIN HUMAN
     Dosage: 10 IU, AT LUNCH
     Route: 065
     Dates: start: 20160203
  9. HUMULIN R [Suspect]
     Active Substance: INSULIN HUMAN
     Indication: TYPE 1 DIABETES MELLITUS
     Dosage: 4 IU, EACH MORNING
     Route: 065
     Dates: start: 20160203
  10. HUMULIN R [Suspect]
     Active Substance: INSULIN HUMAN
     Dosage: 4 IU, EACH EVENING
     Route: 065
     Dates: start: 20160203
  11. HUMULIN N [Suspect]
     Active Substance: INSULIN HUMAN
     Dosage: 10 IU, AT DINNER
     Route: 065
     Dates: start: 20160203

REACTIONS (2)
  - Hyperglycaemia [Recovered/Resolved]
  - Weight decreased [Unknown]
